FAERS Safety Report 13845872 (Version 1)
Quarter: 2017Q3

REPORT INFORMATION
  Report Type: Spontaneous
  Country: US (occurrence: US)
  Receive Date: 20170808
  Receipt Date: 20170808
  Transmission Date: 20171127
  Serious: No
  Sender: FDA-Public Use
  Company Number: US-ROCHE-724640

PATIENT
  Age: 89 Year
  Sex: Female

DRUGS (2)
  1. BONIVA [Suspect]
     Active Substance: IBANDRONATE SODIUM
     Indication: OSTEOPOROSIS
     Dosage: MEDICATION ERROR; FORM: PILL
     Route: 048
  2. BONIVA [Suspect]
     Active Substance: IBANDRONATE SODIUM
     Dosage: FORM: PILL
     Route: 048

REACTIONS (5)
  - Inappropriate schedule of drug administration [Unknown]
  - Eye pruritus [Unknown]
  - Corrective lens user [Unknown]
  - Cystitis [Unknown]
  - Confusional state [Unknown]

NARRATIVE: CASE EVENT DATE: 20100823
